FAERS Safety Report 13829426 (Version 1)
Quarter: 2017Q3

REPORT INFORMATION
  Report Type: Spontaneous
  Country: US (occurrence: US)
  Receive Date: 20170803
  Receipt Date: 20170803
  Transmission Date: 20171127
  Serious: Yes (Death)
  Sender: FDA-Public Use
  Company Number: None

PATIENT
  Age: 41 Year

DRUGS (10)
  1. POTASSIUM [Concomitant]
     Active Substance: POTASSIUM
  2. AVASTIN [Suspect]
     Active Substance: BEVACIZUMAB
     Indication: RECTAL CANCER
     Dosage: OTHER FREQUENCY:INFUSE;?
     Route: 017
  3. LOSARTAN POTASSIUM. [Concomitant]
     Active Substance: LOSARTAN POTASSIUM
  4. NIAPAN [Concomitant]
  5. LASIX [Concomitant]
     Active Substance: FUROSEMIDE
  6. SODIUM CARBONATE [Concomitant]
     Active Substance: SODIUM CARBONATE
  7. GABAPENTIN. [Concomitant]
     Active Substance: GABAPENTIN
  8. LACTULOSE. [Concomitant]
     Active Substance: LACTULOSE
  9. BENZODENT [Concomitant]
     Active Substance: BENZOCAINE
  10. PRILOSEC [Concomitant]
     Active Substance: OMEPRAZOLE MAGNESIUM

REACTIONS (1)
  - Death [None]
